FAERS Safety Report 15494260 (Version 2)
Quarter: 2018Q4

REPORT INFORMATION
  Report Type: Spontaneous
  Country: FR (occurrence: FR)
  Receive Date: 20181012
  Receipt Date: 20181022
  Transmission Date: 20190205
  Serious: Yes (Death)
  Sender: FDA-Public Use
  Company Number: FR-PFIZER INC-2018413478

PATIENT
  Age: 81 Year
  Sex: Male
  Weight: 70 kg

DRUGS (5)
  1. PERMIXON [Concomitant]
     Active Substance: HERBALS\SAW PALMETTO
     Route: 048
  2. ATENOLOL. [Concomitant]
     Active Substance: ATENOLOL
     Route: 048
  3. CELEBREX [Suspect]
     Active Substance: CELECOXIB
     Indication: OSTEOARTHRITIS
     Dosage: 100 MG, 1X/DAY
     Route: 048
     Dates: start: 20180524, end: 20180807
  4. VOLTARENE (DICLOFENAC SODIUM) [Suspect]
     Active Substance: DICLOFENAC SODIUM
     Indication: OSTEOARTHRITIS
     Dosage: UNK
     Route: 048
     Dates: start: 2018, end: 20180830
  5. MOPRAL [OMEPRAZOLE MAGNESIUM] [Concomitant]
     Dosage: UNK
     Route: 048
     Dates: start: 20180524, end: 20180807

REACTIONS (4)
  - Necrotising oesophagitis [Fatal]
  - Peptic ulcer [Fatal]
  - Peritonitis [Fatal]
  - Gastrointestinal perforation [Fatal]

NARRATIVE: CASE EVENT DATE: 20180831
